FAERS Safety Report 4611271-0 (Version None)
Quarter: 2005Q2

REPORT INFORMATION
  Report Type: 
  Country: None (occurrence: None)
  Receive Date: 20050311
  Receipt Date: 20041210
  Transmission Date: 20051028
  Serious: No
  Sender: FDA-Public Use
  Company Number: 2004-BP-13670BP

PATIENT
  Sex: Male

DRUGS (9)
  1. SPIRIVA [Suspect]
     Indication: LUNG DISORDER
     Dosage: (18 MCG), IH
     Route: 055
  2. FUROSEMIDE [Concomitant]
  3. DIGOXIN [Concomitant]
  4. ZESTRIL [Concomitant]
  5. ALLOPURINOL [Concomitant]
  6. ASPIRIN [Concomitant]
  7. VEROXIL (INDAPAMIDE) [Concomitant]
  8. SEREVENT [Concomitant]
  9. ALBUTEROL [Concomitant]

REACTIONS (1)
  - AGEUSIA [None]
